FAERS Safety Report 21556077 (Version 1)
Quarter: 2022Q4

REPORT INFORMATION
  Report Type: Report from Study
  Country: DE (occurrence: DE)
  Receive Date: 20221104
  Receipt Date: 20221104
  Transmission Date: 20230112
  Serious: Yes (Hospitalization, Other)
  Sender: FDA-Public Use
  Company Number: DE-CC-92480-MM-002-6011002-20210924-0002SG

PATIENT
  Age: 53 Year
  Sex: Female
  Weight: 78 kg

DRUGS (19)
  1. DEXAMETHASONE [Suspect]
     Active Substance: DEXAMETHASONE
     Indication: Plasma cell myeloma
     Dosage: 28 MG
     Route: 048
     Dates: start: 20210331, end: 20210331
  2. ELOTUZUMAB [Suspect]
     Active Substance: ELOTUZUMAB
     Indication: Plasma cell myeloma
     Dosage: 750 MG
     Route: 042
     Dates: start: 20210331, end: 20210331
  3. CALCIUMASCORBAT [Concomitant]
     Indication: Asthenia
     Dosage: 500 MG/G X 2 X 1 DAYS
     Route: 048
     Dates: start: 202103
  4. FAMENITA PROGESTERON [Concomitant]
     Indication: Insomnia
     Dosage: 200 MG X 1 X 1 DAYS
     Route: 048
     Dates: start: 202007
  5. FAMOTIDINE [Concomitant]
     Active Substance: FAMOTIDINE
     Indication: Irritable bowel syndrome
     Dosage: 40 MG X 2 X 1 DAYS
     Route: 048
     Dates: start: 202010
  6. LACTOFERRIN [Concomitant]
     Active Substance: LACTOFERRIN
     Indication: Insomnia
     Dosage: FREQUENCY TEXT: PRN?200 MG X PRN
     Route: 065
     Dates: start: 202003
  7. RUPATADINE [Concomitant]
     Active Substance: RUPATADINE
     Indication: Food intolerance
     Dosage: 10 MG X 2 X 1 DAYS
     Dates: start: 202010
  8. SELENASE [Concomitant]
     Indication: Rhinitis allergic
     Dosage: 200 MG X 1 X 1 DAYS
     Route: 048
     Dates: start: 2017
  9. ZOLEDRONIC ACID [Concomitant]
     Active Substance: ZOLEDRONIC ACID
     Indication: Prophylaxis
     Dosage: 4 MG X 1 X 4 WEEKS
     Route: 042
     Dates: start: 201908
  10. ACYCLOVIR [Concomitant]
     Active Substance: ACYCLOVIR
     Indication: Prophylaxis
     Dosage: 400 MG X 2 X 1 DAYS
     Route: 048
     Dates: start: 20210401
  11. AMOXICILLIN\CLAVULANIC ACID [Concomitant]
     Active Substance: AMOXICILLIN\CLAVULANIC ACID
     Indication: Osteonecrosis of jaw
     Dosage: 875/125 MG X 2 X 1 DAYS
     Route: 048
     Dates: start: 20210503
  12. BIFIDOFLOR HIT (LACTOBACILLUS UND BIFIDOBACTERIUM) [Concomitant]
     Indication: Prophylaxis
     Dosage: 1 TABLET X 2 X 1 DAYS
     Route: 048
     Dates: start: 20210504
  13. CETERIZIN [Concomitant]
     Indication: Rhinitis allergic
     Dosage: 10 MG X 1 X 1 DAYS
     Route: 048
     Dates: start: 20210629
  14. CHLORHEXAMED 1% GEL [Concomitant]
     Indication: Osteonecrosis of jaw
     Dosage: 1 % X 3 X 1 DAYS
     Route: 061
     Dates: start: 20210503
  15. CLEXANE 40MG [Concomitant]
     Indication: Prophylaxis
     Dosage: 40 MG X 1 X 1 DAYS
     Route: 058
     Dates: start: 20210330
  16. ACETAMINOPHEN [Concomitant]
     Active Substance: ACETAMINOPHEN
     Indication: Prophylaxis
     Dosage: 1 G X 1 X 1 WEEKS
     Route: 048
     Dates: start: 20210331
  17. CLEMASTINE FUMARATE [Concomitant]
     Active Substance: CLEMASTINE FUMARATE
     Indication: Prophylaxis
     Dosage: 2 MG X 1 X 1 WEEKS
     Route: 042
     Dates: start: 20210331
  18. VITAMIN D [Concomitant]
     Active Substance: VITAMIN D NOS
     Indication: Prophylaxis
     Dosage: 1 ML X 1 X 1 DAYS
     Route: 048
     Dates: start: 20210609
  19. VITAMIN D3 [Concomitant]
     Active Substance: CHOLECALCIFEROL
     Indication: Prophylaxis
     Dosage: 5000 IU X 1 X 1 DAYS
     Route: 048
     Dates: start: 20210506

REACTIONS (1)
  - Listeriosis [Recovered/Resolved]

NARRATIVE: CASE EVENT DATE: 20210924
